FAERS Safety Report 21977398 (Version 1)
Quarter: 2023Q1

REPORT INFORMATION
  Report Type: Spontaneous
  Country: US (occurrence: None)
  Receive Date: 20230209
  Receipt Date: 20230209
  Transmission Date: 20230418
  Serious: Yes (Other)
  Sender: FDA-Public Use
  Company Number: None

PATIENT
  Age: 25 Year
  Sex: Female
  Weight: 52.16 kg

DRUGS (1)
  1. LEXAPRO [Suspect]
     Active Substance: ESCITALOPRAM OXALATE
     Indication: Anxiety
     Dates: start: 20221227, end: 20221227

REACTIONS (32)
  - Ageusia [None]
  - Insomnia [None]
  - Crying [None]
  - Diarrhoea [None]
  - Vision blurred [None]
  - Dizziness [None]
  - Nasal dryness [None]
  - Dry eye [None]
  - Hypertension [None]
  - Abnormal dreams [None]
  - Emotional disorder [None]
  - Muscle twitching [None]
  - Sensation of foreign body [None]
  - Muscular weakness [None]
  - Hypoaesthesia [None]
  - Pain threshold decreased [None]
  - Feeling of body temperature change [None]
  - Paraesthesia [None]
  - Hypoaesthesia [None]
  - Derealisation [None]
  - Feeling abnormal [None]
  - Muscle spasms [None]
  - Musculoskeletal discomfort [None]
  - Dysphagia [None]
  - Bruxism [None]
  - Gastrointestinal sounds abnormal [None]
  - Tremor [None]
  - Hypohidrosis [None]
  - Decreased appetite [None]
  - Appetite disorder [None]
  - Loss of libido [None]
  - Thirst decreased [None]

NARRATIVE: CASE EVENT DATE: 20221227
